FAERS Safety Report 13695668 (Version 1)
Quarter: 2017Q2

REPORT INFORMATION
  Report Type: Report from Study
  Country: US (occurrence: US)
  Receive Date: 20170627
  Receipt Date: 20170627
  Transmission Date: 20170830
  Serious: Yes (Hospitalization)
  Sender: FDA-Public Use
  Company Number: US-VIFOR (INTERNATIONAL) INC.-VIT-2017-02650

PATIENT
  Age: 66 Year
  Sex: Male
  Weight: 83.54 kg

DRUGS (24)
  1. VELTASSA [Suspect]
     Active Substance: PATIROMER
     Route: 048
  2. FUROSEMIDE. [Concomitant]
     Active Substance: FUROSEMIDE
  3. NEXIUM [Concomitant]
     Active Substance: ESOMEPRAZOLE MAGNESIUM
  4. URSODEOXYCHOLIC ACID [Concomitant]
     Active Substance: URSODIOL
  5. DUTASTERIDE. [Concomitant]
     Active Substance: DUTASTERIDE
  6. VELTASSA [Suspect]
     Active Substance: PATIROMER
     Indication: BLOOD POTASSIUM INCREASED
     Dates: start: 20161228, end: 201706
  7. LYRICA [Concomitant]
     Active Substance: PREGABALIN
     Indication: NEPHROPATHY
  8. IRON [Concomitant]
     Active Substance: IRON
  9. KLONOPIN [Concomitant]
     Active Substance: CLONAZEPAM
  10. PROVIGIL [Concomitant]
     Active Substance: MODAFINIL
  11. PROPRANOLOL [Concomitant]
     Active Substance: PROPRANOLOL HYDROCHLORIDE
  12. PRAVASTATIN. [Concomitant]
     Active Substance: PRAVASTATIN
  13. INSULIN [Concomitant]
     Active Substance: INSULIN NOS
  14. SYNTHROID [Concomitant]
     Active Substance: LEVOTHYROXINE SODIUM
     Dosage: TIMES TWO
  15. CIPRO [Concomitant]
     Active Substance: CIPROFLOXACIN HYDROCHLORIDE
     Indication: SURGERY
  16. TRAMADOL. [Concomitant]
     Active Substance: TRAMADOL
  17. VALSARTAN. [Concomitant]
     Active Substance: VALSARTAN
  18. PAROXETINE. [Concomitant]
     Active Substance: PAROXETINE
  19. FISH OIL [Concomitant]
     Active Substance: FISH OIL
  20. MIRALAX [Concomitant]
     Active Substance: POLYETHYLENE GLYCOL 3350
  21. MONTELUKAST [Concomitant]
     Active Substance: MONTELUKAST SODIUM
  22. FENOFIBRATE. [Concomitant]
     Active Substance: FENOFIBRATE
  23. CREON [Concomitant]
     Active Substance: PANCRELIPASE AMYLASE\PANCRELIPASE LIPASE\PANCRELIPASE PROTEASE
  24. TERAZOSIN [Concomitant]
     Active Substance: TERAZOSIN\TERAZOSIN HYDROCHLORIDE

REACTIONS (4)
  - Gastrointestinal disorder [Unknown]
  - Frequent bowel movements [Unknown]
  - Drug ineffective [Unknown]
  - Product solubility abnormal [Unknown]

NARRATIVE: CASE EVENT DATE: 201706
